FAERS Safety Report 7224419-9 (Version None)
Quarter: 2011Q1

REPORT INFORMATION
  Report Type: 
  Country: None (occurrence: None)
  Receive Date: 20110113
  Receipt Date: 20110107
  Transmission Date: 20110831
  Serious: Yes (Hospitalization, Other)
  Sender: FDA-Public Use
  Company Number: US-JNJFOC-20100703638

PATIENT
  Sex: Male

DRUGS (6)
  1. PREDNISOLONE [Suspect]
     Indication: DERMATITIS ATOPIC
     Route: 065
  2. LEVAQUIN [Suspect]
     Indication: OTITIS EXTERNA
     Route: 048
  3. DEXAMETHASONE [Suspect]
     Indication: ILL-DEFINED DISORDER
     Route: 065
  4. AVELOX [Suspect]
     Indication: OTITIS EXTERNA
     Route: 065
  5. FLUOCINOLONE ACETONIDE [Suspect]
     Indication: PRODUCT USED FOR UNKNOWN INDICATION
     Route: 065
  6. LEVAQUIN [Suspect]
     Indication: DERMATITIS ATOPIC
     Route: 048

REACTIONS (3)
  - ROTATOR CUFF SYNDROME [None]
  - TENDON RUPTURE [None]
  - JOINT INJURY [None]
